APPROVED DRUG PRODUCT: GABAPENTIN
Active Ingredient: GABAPENTIN
Strength: 600MG
Dosage Form/Route: TABLET;ORAL
Application: A076605 | Product #001
Applicant: RANBAXY LABORATORIES LTD
Approved: Sep 14, 2005 | RLD: No | RS: No | Type: DISCN